FAERS Safety Report 5001531-6 (Version None)
Quarter: 2006Q2

REPORT INFORMATION
  Report Type: 
  Country: None (occurrence: None)
  Receive Date: 20060501
  Receipt Date: 20060424
  Transmission Date: 20061013
  Serious: Yes (Hospitalization, Other)
  Sender: FDA-Public Use
  Company Number: 2005043312

PATIENT
  Age: 66 Year
  Sex: Male
  Weight: 83.0083 kg

DRUGS (8)
  1. LIPITOR [Suspect]
     Indication: BLOOD CHOLESTEROL INCREASED
     Dosage: 20 MG (20 MG, 1 IN 1 D)
     Dates: start: 20040101
  2. PLAVIX [Concomitant]
  3. ATACAND [Concomitant]
  4. ASPIRIN [Concomitant]
  5. COENZYME Q10 [Concomitant]
  6. CELERY SEED EXTRACT (CELERY SEED EXTRACT) [Concomitant]
  7. COLCHICINE [Concomitant]
  8. PREDNISONE TAB [Concomitant]

REACTIONS (7)
  - BACK PAIN [None]
  - CONDITION AGGRAVATED [None]
  - GOUT [None]
  - MYALGIA [None]
  - PAIN IN EXTREMITY [None]
  - SHOULDER PAIN [None]
  - VASCULAR BYPASS GRAFT [None]
